FAERS Safety Report 6458865-8 (Version None)
Quarter: 2009Q4

REPORT INFORMATION
  Report Type: 
  Country: None (occurrence: None)
  Receive Date: 20091127
  Receipt Date: 20091117
  Transmission Date: 20100525
  Serious: Yes (Other)
  Sender: FDA-Public Use
  Company Number: US-BAYER-200911300NA

PATIENT
  Age: 35 Year
  Sex: Female
  Weight: 77 kg

DRUGS (2)
  1. YAZ [Suspect]
     Indication: CONTRACEPTION
     Route: 048
     Dates: start: 20080707, end: 20081229
  2. ZOLOFT [Concomitant]
     Indication: PREMENSTRUAL SYNDROME
     Route: 048
     Dates: start: 20080701

REACTIONS (2)
  - DIABETES COMPLICATING PREGNANCY [None]
  - PREGNANCY ON ORAL CONTRACEPTIVE [None]
